FAERS Safety Report 9452688 (Version 1)
Quarter: 2013Q3

REPORT INFORMATION
  Report Type: Spontaneous
  Country: US (occurrence: None)
  Receive Date: 20130808
  Receipt Date: 20130808
  Transmission Date: 20140515
  Serious: Yes (Hospitalization)
  Sender: FDA-Public Use
  Company Number: None

PATIENT
  Age: 4 Year
  Sex: Male
  Weight: 20.8 kg

DRUGS (4)
  1. PEG-L-ASPARAGINASE (PEGASPARGASE, ONCOSPAR) [Suspect]
  2. VINCRISTINE SULFATE [Suspect]
  3. DEXAMETHASONE [Suspect]
  4. LOVENOX [Concomitant]

REACTIONS (3)
  - Deep vein thrombosis [None]
  - Gastrointestinal haemorrhage [None]
  - Coagulopathy [None]
